FAERS Safety Report 5920166-1 (Version None)
Quarter: 2008Q4

REPORT INFORMATION
  Report Type: 
  Country: None (occurrence: None)
  Receive Date: 20081016
  Receipt Date: 20081007
  Transmission Date: 20090506
  Serious: Yes (Other)
  Sender: FDA-Public Use
  Company Number: US-ALLERGAN-0812678US

PATIENT
  Sex: Female

DRUGS (1)
  1. REFRESH LUBRICANT OPHTHALMIC SOLUTION [Suspect]
     Indication: DRUG USE FOR UNKNOWN INDICATION
     Route: 047

REACTIONS (2)
  - BLINDNESS [None]
  - VISION BLURRED [None]
